FAERS Safety Report 22080965 (Version 13)
Quarter: 2024Q2

REPORT INFORMATION
  Report Type: Report from Study
  Country: CA (occurrence: CA)
  Receive Date: 20230309
  Receipt Date: 20240528
  Transmission Date: 20240716
  Serious: Yes (Hospitalization, Other)
  Sender: FDA-Public Use
  Company Number: CA-HORIZON THERAPEUTICS-HZN-2023-001688

PATIENT
  Age: 12 Year
  Sex: Female
  Weight: 63.2 kg

DRUGS (25)
  1. RAVICTI [Suspect]
     Active Substance: GLYCEROL PHENYLBUTYRATE
     Indication: Ornithine transcarbamoylase deficiency
     Dosage: 5.00 ML, TID, : MULTI-USE, 25-ML GLASS BOTTLES
     Route: 065
     Dates: start: 20170203
  2. RAVICTI [Suspect]
     Active Substance: GLYCEROL PHENYLBUTYRATE
     Dosage: 5.5 ML, TID (MULTI-USE, 25-ML GLASS BOTTLES) (GOOD RESPONSE)
     Route: 065
     Dates: start: 20170203
  3. RAVICTI [Suspect]
     Active Substance: GLYCEROL PHENYLBUTYRATE
     Dosage: 6 ML, TID
     Route: 065
     Dates: start: 2023
  4. RAVICTI [Suspect]
     Active Substance: GLYCEROL PHENYLBUTYRATE
     Dosage: 6 ML 2 TIMES DAILY AND 5 ML ONCE DAILY  FOR A TOTAL OF  17ML, TID/ 6MLS, 5 MLS AND 6 MLS IN A DAY
     Route: 065
  5. RAVICTI [Suspect]
     Active Substance: GLYCEROL PHENYLBUTYRATE
     Dosage: ORAL LIQUID, 1 EVERY 8 HOURS
     Route: 065
  6. RAVICTI [Suspect]
     Active Substance: GLYCEROL PHENYLBUTYRATE
     Dosage: 5.5 ML, ORAL LIQUID, 1 EVERY 8 HOURS
     Route: 065
  7. RAVICTI [Suspect]
     Active Substance: GLYCEROL PHENYLBUTYRATE
     Dosage: 6 ML, 1 EVERY 8 HOURS (3 TIMES DAILY))
     Route: 065
  8. RAVICTI [Suspect]
     Active Substance: GLYCEROL PHENYLBUTYRATE
     Dosage: 5.0 ML, TID (THREE TIMES DAILY)
     Route: 065
  9. RAVICTI [Suspect]
     Active Substance: GLYCEROL PHENYLBUTYRATE
     Dosage: 9.93 ML/M2, QD
     Route: 065
  10. CITRULLINE [Concomitant]
     Active Substance: CITRULLINE
     Indication: Product used for unknown indication
     Dosage: 1.7 G, TID, (3 TIMES A DAY GOOD RESPONSE)
     Route: 065
     Dates: start: 20170302
  11. CITRULLINE [Concomitant]
     Active Substance: CITRULLINE
     Dosage: 1.7 G, TID
     Route: 065
     Dates: start: 202303
  12. PREVACID [Concomitant]
     Active Substance: LANSOPRAZOLE
     Indication: Product used for unknown indication
     Route: 065
  13. ADVIL [Concomitant]
     Active Substance: IBUPROFEN
     Indication: Product used for unknown indication
     Route: 065
  14. TUMS [Concomitant]
     Active Substance: CALCIUM CARBONATE
     Indication: Product used for unknown indication
     Dosage: TWO TABLETS, QD
     Route: 065
  15. DICLOFENAC [Concomitant]
     Active Substance: DICLOFENAC
     Indication: Product used for unknown indication
     Route: 065
  16. VITAMIN K [Concomitant]
     Active Substance: PHYTONADIONE
     Indication: Product used for unknown indication
     Dosage: UNK
     Route: 065
  17. VITAMINS [Concomitant]
     Active Substance: VITAMINS
     Indication: Product used for unknown indication
     Dosage: MEN^S 2 PER DAY (THIS IS FOR ZINC AND SELENIUM SUPPLEMENTS THAT WERE LOW IN THE PAST).
     Route: 065
  18. AMINO ACIDS, SOURCE UNSPECIFIED [Concomitant]
     Active Substance: AMINO ACIDS, SOURCE UNSPECIFIED
     Indication: Product used for unknown indication
     Route: 065
  19. VITAMIN D NOS [Concomitant]
     Active Substance: CHOLECALCIFEROL\ERGOCALCIFEROL
     Indication: Product used for unknown indication
     Route: 065
  20. CALCIUM [Concomitant]
     Active Substance: CALCIUM
     Indication: Product used for unknown indication
     Route: 065
  21. IRON [Concomitant]
     Active Substance: IRON
     Indication: Product used for unknown indication
     Dosage: 5 ML, QD
     Route: 065
  22. CALCIUM CARBONATE [Concomitant]
     Active Substance: CALCIUM CARBONATE
     Indication: Product used for unknown indication
     Route: 065
  23. IBUPROFEN [Concomitant]
     Active Substance: IBUPROFEN
     Indication: Product used for unknown indication
     Route: 065
  24. VITAMINS NOS [Concomitant]
     Active Substance: VITAMINS
     Indication: Product used for unknown indication
     Route: 065
  25. UNSPECIFIED INGREDIENT [Concomitant]
     Active Substance: UNSPECIFIED INGREDIENT
     Indication: Menstrual cycle management
     Dosage: 6 WEEKS AND ONE WEEK IS OFF THE PATCH.
     Route: 065

REACTIONS (24)
  - Thrombocytopenia [Unknown]
  - Hyperammonaemic crisis [Recovering/Resolving]
  - Transaminases increased [Unknown]
  - Gamma-glutamyltransferase increased [Unknown]
  - Magnetic resonance imaging head abnormal [Unknown]
  - Hepatic mass [Unknown]
  - Lymphopenia [Unknown]
  - Influenza [Unknown]
  - Weight increased [Unknown]
  - Hepatic steatosis [Unknown]
  - Anaemia [Unknown]
  - Hepatic function abnormal [Unknown]
  - Ammonia abnormal [Unknown]
  - Ammonia increased [Not Recovered/Not Resolved]
  - Blood iron decreased [Unknown]
  - Heavy menstrual bleeding [Unknown]
  - Drug ineffective [Not Recovered/Not Resolved]
  - Menstruation irregular [Not Recovered/Not Resolved]
  - COVID-19 [Recovering/Resolving]
  - Cough [Unknown]
  - Learning disorder [Unknown]
  - Amino acid level increased [Unknown]
  - Amino acid level decreased [Unknown]
  - Ammonia increased [Unknown]

NARRATIVE: CASE EVENT DATE: 20220101
